FAERS Safety Report 22607656 (Version 1)
Quarter: 2023Q2

REPORT INFORMATION
  Report Type: Spontaneous
  Country: FR (occurrence: FR)
  Receive Date: 20230616
  Receipt Date: 20230616
  Transmission Date: 20230721
  Serious: Yes (Other)
  Sender: FDA-Public Use
  Company Number: FR-AMGEN-FRASP2022229823

PATIENT
  Age: 73 Year
  Sex: Male

DRUGS (1)
  1. SOTORASIB [Suspect]
     Active Substance: SOTORASIB
     Indication: Metastatic bronchial carcinoma
     Dosage: 900 MILLIGRAM
     Route: 048
     Dates: start: 20211206, end: 20220207

REACTIONS (2)
  - Liver injury [Not Recovered/Not Resolved]
  - Diarrhoea [Not Recovered/Not Resolved]
